FAERS Safety Report 23654498 (Version 1)
Quarter: 2024Q1

REPORT INFORMATION
  Report Type: Report from Study
  Country: JP (occurrence: JP)
  Receive Date: 20240320
  Receipt Date: 20240320
  Transmission Date: 20240410
  Serious: Yes (Other)
  Sender: FDA-Public Use
  Company Number: JP-JNJFOC-20201141821

PATIENT

DRUGS (2)
  1. REMICADE [Suspect]
     Active Substance: INFLIXIMAB
     Indication: Behcet^s syndrome
     Route: 041
  2. METHOTREXATE [Concomitant]
     Active Substance: METHOTREXATE
     Indication: Behcet^s syndrome
     Route: 065

REACTIONS (6)
  - Pneumocystis jirovecii pneumonia [Unknown]
  - Brain stem syndrome [Unknown]
  - Pyrexia [Unknown]
  - Cough [Unknown]
  - Off label use [Unknown]
  - Product use in unapproved indication [Unknown]
